FAERS Safety Report 13820639 (Version 2)
Quarter: 2017Q4

REPORT INFORMATION
  Report Type: Spontaneous
  Country: BR (occurrence: BR)
  Receive Date: 20170801
  Receipt Date: 20171214
  Transmission Date: 20180320
  Serious: Yes (Other)
  Sender: FDA-Public Use
  Company Number: BR-ABBVIE-17P-020-2024611-00

PATIENT
  Age: 22 Year
  Sex: Male
  Weight: 65 kg

DRUGS (7)
  1. NEULEPTIL [Concomitant]
     Active Substance: PERICIAZINE
     Dosage: 30 DROPS AROUND 10:30 P.M.
     Route: 048
  2. DEPAKOTE [Suspect]
     Active Substance: DIVALPROEX SODIUM
     Indication: EPILEPSY
     Dosage: 2 CAPSULES IN THE MORNING/ 3 CAPSULE AT NIGHT; TOTAL DRUG DURATION: 8 YEARS
     Route: 048
     Dates: end: 20171206
  3. DEPAKOTE [Suspect]
     Active Substance: DIVALPROEX SODIUM
     Indication: SEIZURE
  4. DEPAKENE [Suspect]
     Active Substance: VALPROIC ACID
     Indication: EPILEPSY
  5. NEULEPTIL [Concomitant]
     Active Substance: PERICIAZINE
     Indication: SLEEP DISORDER THERAPY
     Dosage: 10 DROPS AT NIGHT
     Route: 048
  6. DEPAKENE [Suspect]
     Active Substance: VALPROIC ACID
     Indication: EPILEPSY
     Route: 048
  7. DEPAKENE [Suspect]
     Active Substance: VALPROIC ACID
     Indication: EPILEPSY
     Route: 048

REACTIONS (15)
  - Nausea [Recovered/Resolved]
  - Eating disorder [Not Recovered/Not Resolved]
  - Abdominal discomfort [Not Recovered/Not Resolved]
  - Vomiting [Not Recovered/Not Resolved]
  - Erythema [Not Recovered/Not Resolved]
  - Skin exfoliation [Not Recovered/Not Resolved]
  - Apathy [Not Recovered/Not Resolved]
  - Dermatitis allergic [Not Recovered/Not Resolved]
  - Oral discomfort [Not Recovered/Not Resolved]
  - Seizure [Unknown]
  - Abdominal discomfort [Recovered/Resolved]
  - Drug administered to patient of inappropriate age [Unknown]
  - Off label use [Unknown]
  - Drug dose omission [Unknown]
  - Retching [Not Recovered/Not Resolved]

NARRATIVE: CASE EVENT DATE: 2015
